FAERS Safety Report 10130484 (Version 1)
Quarter: 2014Q2

REPORT INFORMATION
  Report Type: Spontaneous
  Country: GB (occurrence: GB)
  Receive Date: 20140428
  Receipt Date: 20140428
  Transmission Date: 20141212
  Serious: Yes (Other)
  Sender: FDA-Public Use
  Company Number: GB-BANPHARM-20142606

PATIENT
  Sex: 0

DRUGS (3)
  1. IBUPROFEN UNKNOWN PRODUCT [Suspect]
     Route: 048
  2. APIXABAN [Suspect]
     Indication: HIP ARTHROPLASTY
  3. METFORMIN [Suspect]
     Indication: DIABETES MELLITUS

REACTIONS (2)
  - Blood creatinine abnormal [Unknown]
  - Drug interaction [Unknown]
